FAERS Safety Report 6907135-X (Version None)
Quarter: 2010Q3

REPORT INFORMATION
  Report Type: 
  Country: None (occurrence: None)
  Receive Date: 20100804
  Receipt Date: 20090712
  Transmission Date: 20110219
  Serious: Yes (Other)
  Sender: FDA-Public Use
  Company Number: US-PFIZER INC-2009220401

PATIENT
  Sex: Female

DRUGS (6)
  1. ADRIAMYCIN PFS [Suspect]
     Indication: BREAST CANCER
     Dosage: UNK
  2. ADRIAMYCIN PFS [Suspect]
     Indication: ADJUVANT THERAPY
  3. CYTOXAN [Suspect]
     Indication: BREAST CANCER
     Dosage: UNK
     Dates: start: 20020101, end: 20020101
  4. CYTOXAN [Suspect]
     Indication: ADJUVANT THERAPY
  5. TAXOTERE [Suspect]
     Indication: BREAST CANCER
     Dosage: CYCLIC
     Route: 042
     Dates: start: 20020101, end: 20020101
  6. TAXOTERE [Suspect]
     Indication: ADJUVANT THERAPY

REACTIONS (19)
  - ABASIA [None]
  - ARTHRALGIA [None]
  - DRY EYE [None]
  - DRY MOUTH [None]
  - HYPOAESTHESIA [None]
  - NAIL DISCOLOURATION [None]
  - NAIL GROWTH ABNORMAL [None]
  - NAUSEA [None]
  - NEURALGIA [None]
  - NEUROPATHY PERIPHERAL [None]
  - ORAL FUNGAL INFECTION [None]
  - OSTEOARTHRITIS [None]
  - PAIN IN EXTREMITY [None]
  - RECTAL ULCER [None]
  - STOMATITIS [None]
  - SYNOVITIS [None]
  - TOOTH LOSS [None]
  - ULCERATIVE KERATITIS [None]
  - VOMITING [None]
